FAERS Safety Report 4543044-1 (Version None)
Quarter: 2004Q4

REPORT INFORMATION
  Report Type: 
  Country: None (occurrence: None)
  Receive Date: 20041229
  Receipt Date: 20041222
  Transmission Date: 20050328
  Serious: Yes (Life-Threatening, Hospitalization)
  Sender: FDA-Public Use
  Company Number: 2004SE07118

PATIENT
  Sex: Male
  Weight: 81.2 kg

DRUGS (5)
  1. ZOLADEX [Suspect]
     Indication: PROSTATE CANCER
     Dosage: 10.8 MG Q3MO SQ
     Route: 058
     Dates: start: 20040701, end: 20041201
  2. DOXAZOSIN [Concomitant]
  3. CENTYL [Concomitant]
  4. ATENOLOL [Concomitant]
  5. VENTOLIN [Concomitant]

REACTIONS (3)
  - ASTHMA [None]
  - DRUG HYPERSENSITIVITY [None]
  - PULMONARY FUNCTION TEST DECREASED [None]
